FAERS Safety Report 7983701-8 (Version None)
Quarter: 2011Q4

REPORT INFORMATION
  Report Type: 
  Country: None (occurrence: None)
  Receive Date: 20111215
  Receipt Date: 20111205
  Transmission Date: 20120403
  Serious: Yes (Death, Other)
  Sender: FDA-Public Use
  Company Number: US-BAXTER-2010BH003582

PATIENT
  Age: 86 Year
  Sex: Male
  Weight: 109 kg

DRUGS (32)
  1. HEPARIN SODIUM INJECTION [Suspect]
     Indication: HAEMODIALYSIS
     Route: 042
     Dates: start: 20080117
  2. HEPARIN SODIUM INJECTION [Suspect]
     Route: 042
     Dates: start: 20080117
  3. HEPARIN SODIUM INJECTION [Suspect]
     Route: 050
     Dates: start: 20080117
  4. GLYBURIDE [Concomitant]
     Indication: PRODUCT USED FOR UNKNOWN INDICATION
     Route: 065
  5. ACETAMINOPHEN [Concomitant]
     Indication: PRODUCT USED FOR UNKNOWN INDICATION
     Route: 065
  6. HEPARIN SODIUM INJECTION [Suspect]
     Route: 042
     Dates: start: 20080117
  7. LISINOPRIL [Concomitant]
     Indication: PRODUCT USED FOR UNKNOWN INDICATION
     Route: 065
  8. ACTOS [Concomitant]
     Indication: PRODUCT USED FOR UNKNOWN INDICATION
     Route: 065
  9. MAGNESIUM SULFATE [Concomitant]
     Indication: PRODUCT USED FOR UNKNOWN INDICATION
     Route: 065
  10. HEPARIN SODIUM INJECTION [Suspect]
     Route: 050
     Dates: start: 20080117
  11. HEPARIN SODIUM INJECTION [Suspect]
     Route: 050
     Dates: start: 20080117
  12. POTASSIUM CHLORIDE [Concomitant]
     Indication: PRODUCT USED FOR UNKNOWN INDICATION
     Route: 065
  13. PROPOFOL [Concomitant]
     Indication: PRODUCT USED FOR UNKNOWN INDICATION
     Route: 042
  14. HEPARIN SODIUM 5,000 UNITS IN DEXTROSE 5% [Suspect]
     Indication: CORONARY ARTERY BYPASS
     Route: 041
     Dates: start: 20080117
  15. HEPARIN SODIUM INJECTION [Suspect]
     Route: 042
     Dates: start: 20080128
  16. CALCIUM [Concomitant]
     Indication: PRODUCT USED FOR UNKNOWN INDICATION
     Route: 065
  17. DIGOXIN [Concomitant]
     Indication: PRODUCT USED FOR UNKNOWN INDICATION
     Route: 065
  18. HEPARIN SODIUM INJECTION [Suspect]
     Indication: AORTIC VALVE REPLACEMENT
     Route: 042
     Dates: start: 20080117
  19. HYDROCODONE BITARTRATE AND ACETAMINOPHEN [Concomitant]
     Indication: PRODUCT USED FOR UNKNOWN INDICATION
     Route: 065
  20. DILTIAZEM HCL [Concomitant]
     Indication: PRODUCT USED FOR UNKNOWN INDICATION
     Route: 042
  21. DOPAMINE HCL [Concomitant]
     Indication: PRODUCT USED FOR UNKNOWN INDICATION
     Route: 042
  22. ALBUTEROL [Concomitant]
     Indication: PRODUCT USED FOR UNKNOWN INDICATION
     Route: 065
  23. HEPARIN SODIUM 5,000 UNITS IN DEXTROSE 5% [Suspect]
     Indication: AORTIC VALVE REPLACEMENT
     Route: 041
     Dates: start: 20080117
  24. LIPITOR [Concomitant]
     Indication: PRODUCT USED FOR UNKNOWN INDICATION
     Route: 065
  25. VANCOMYCIN [Concomitant]
     Indication: PRODUCT USED FOR UNKNOWN INDICATION
     Route: 065
  26. HEPARIN SODIUM INJECTION [Suspect]
     Route: 042
     Dates: start: 20080117
  27. HEPARIN SODIUM INJECTION [Suspect]
     Route: 042
     Dates: start: 20080128
  28. PIPERACILLIN AND TAZOBACTAM [Concomitant]
     Indication: INFECTION
     Route: 042
  29. HEPARIN SODIUM INJECTION [Suspect]
     Indication: CORONARY ARTERY BYPASS
     Route: 042
     Dates: start: 20080117
  30. HEPARIN SODIUM INJECTION [Suspect]
     Route: 042
     Dates: start: 20080128
  31. FUROSEMIDE [Concomitant]
     Indication: PRODUCT USED FOR UNKNOWN INDICATION
     Route: 065
  32. SODIUM CHLORIDE 0.9% IN PLASTIC CONTAINER [Concomitant]
     Indication: PRODUCT USED FOR UNKNOWN INDICATION
     Route: 065

REACTIONS (19)
  - PHARYNGEAL OEDEMA [None]
  - VOMITING [None]
  - ACUTE RESPIRATORY FAILURE [None]
  - CHRONIC RESPIRATORY FAILURE [None]
  - CORONARY ARTERY DISEASE [None]
  - HYPOXIA [None]
  - CLOSTRIDIUM DIFFICILE COLITIS [None]
  - ERYTHEMA [None]
  - MALABSORPTION [None]
  - ABDOMINAL PAIN [None]
  - PYREXIA [None]
  - WITHDRAWAL OF LIFE SUPPORT [None]
  - ORGAN FAILURE [None]
  - BLOOD PRESSURE DECREASED [None]
  - HEADACHE [None]
  - DECUBITUS ULCER [None]
  - HYPERHIDROSIS [None]
  - DYSPNOEA [None]
  - ASTHENIA [None]
